FAERS Safety Report 18503726 (Version 1)
Quarter: 2020Q4

REPORT INFORMATION
  Report Type: Report from Study
  Country: US (occurrence: US)
  Receive Date: 20201113
  Receipt Date: 20201113
  Transmission Date: 20210114
  Serious: Yes (Death, Other)
  Sender: FDA-Public Use
  Company Number: US-ASTRAZENECA-2020SF48870

PATIENT
  Age: 27716 Day
  Sex: Female

DRUGS (3)
  1. LYNPARZA [Suspect]
     Active Substance: OLAPARIB
     Indication: BLADDER CANCER
     Route: 048
     Dates: start: 20200829
  2. LYNPARZA [Suspect]
     Active Substance: OLAPARIB
     Indication: HEPATIC CANCER
     Route: 048
     Dates: start: 20200829
  3. LYNPARZA [Suspect]
     Active Substance: OLAPARIB
     Indication: GASTRIC CANCER
     Route: 048
     Dates: start: 20200829

REACTIONS (4)
  - Thrombosis [Unknown]
  - Cerebrovascular accident [Fatal]
  - Paralysis [Not Recovered/Not Resolved]
  - Speech disorder [Unknown]

NARRATIVE: CASE EVENT DATE: 20200910
